FAERS Safety Report 5919209-0 (Version None)
Quarter: 2008Q3

REPORT INFORMATION
  Report Type: 
  Country: None (occurrence: None)
  Receive Date: 20080909
  Receipt Date: 20070223
  Transmission Date: 20090109
  Serious: Yes (Hospitalization)
  Sender: FDA-Public Use
  Company Number: 163-20785-07021218

PATIENT
  Age: 55 Year
  Sex: Male

DRUGS (10)
  1. THALOMID [Suspect]
     Indication: MULTIPLE MYELOMA
     Dosage: 100 MG, 1 IN 1 D, ORAL
     Route: 048
     Dates: start: 20060101
  2. DEXAMETHASONE TAB [Suspect]
     Indication: MULTIPLE MYELOMA
     Dosage: 20 MG, DAYS 1-4 + 8-11 EVERY 28 DAYS, ORAL
     Route: 048
     Dates: start: 20060101
  3. VELCADE [Suspect]
     Indication: MULTIPLE MYELOMA
     Dosage: 2 MG, DAYS 1, 4, 8, + 11 EVERY 28 DAYS, INTRAVENOUS
     Route: 042
     Dates: start: 20060731, end: 20060810
  4. RANITIDINE [Concomitant]
  5. METFORMIN HCL [Concomitant]
  6. GLUCOVANCE [Concomitant]
  7. FLUCONAZOLE [Concomitant]
  8. ACYCLOVIR [Concomitant]
  9. FOSINOPRIL SODIUM [Concomitant]
  10. LEVAQUIN [Concomitant]

REACTIONS (3)
  - LUMBAR SPINAL STENOSIS [None]
  - SPINAL LAMINECTOMY [None]
  - SPINAL OSTEOARTHRITIS [None]
